FAERS Safety Report 19054646 (Version 1)
Quarter: 2021Q1

REPORT INFORMATION
  Report Type: Other
  Country: US (occurrence: US)
  Receive Date: 20210325
  Receipt Date: 20210325
  Transmission Date: 20210420
  Serious: No
  Sender: FDA-Public Use
  Company Number: US-EPICPHARMA-2020EPC00319

PATIENT

DRUGS (1)
  1. URSODIOL. [Suspect]
     Active Substance: URSODIOL
     Dosage: UNK
     Dates: start: 2012

REACTIONS (2)
  - Oesophageal pain [Recovering/Resolving]
  - Product residue present [Recovered/Resolved]
